FAERS Safety Report 23278581 (Version 1)
Quarter: 2023Q4

REPORT INFORMATION
  Report Type: Spontaneous
  Country: US (occurrence: None)
  Receive Date: 20231208
  Receipt Date: 20231208
  Transmission Date: 20240109
  Serious: Yes (Hospitalization)
  Sender: FDA-Public Use
  Company Number: None

PATIENT
  Sex: Female

DRUGS (1)
  1. OXBRYTA [Suspect]
     Active Substance: VOXELOTOR
     Indication: Sickle cell disease
     Dosage: 1000 MG ONCE DAILY BY MOUTH?
     Route: 048
     Dates: start: 202307

REACTIONS (3)
  - Sickle cell anaemia with crisis [None]
  - Diarrhoea [None]
  - Fatigue [None]
